FAERS Safety Report 25839595 (Version 1)
Quarter: 2025Q3

REPORT INFORMATION
  Report Type: Spontaneous
  Country: US (occurrence: US)
  Receive Date: 20250924
  Receipt Date: 20250924
  Transmission Date: 20251021
  Serious: No
  Sender: CSL BEHRING
  Company Number: US-BEH-2025219238

PATIENT
  Sex: Female

DRUGS (7)
  1. BERINERT [Suspect]
     Active Substance: HUMAN C1-ESTERASE INHIBITOR
     Indication: Hereditary angioedema
     Route: 042
     Dates: start: 202508
  2. BERINERT [Suspect]
     Active Substance: HUMAN C1-ESTERASE INHIBITOR
     Indication: Hereditary angioedema
     Route: 042
     Dates: start: 202508
  3. BERINERT [Suspect]
     Active Substance: HUMAN C1-ESTERASE INHIBITOR
     Indication: Prophylaxis
  4. BERINERT [Suspect]
     Active Substance: HUMAN C1-ESTERASE INHIBITOR
     Indication: Prophylaxis
  5. ICATIBANT ACETATE [Concomitant]
     Active Substance: ICATIBANT ACETATE
  6. XOLAIR [Concomitant]
     Active Substance: OMALIZUMAB
  7. TAKHZYRO [Concomitant]
     Active Substance: LANADELUMAB-FLYO

REACTIONS (7)
  - COVID-19 [Unknown]
  - Asthma [Unknown]
  - Pyrexia [Unknown]
  - Heat exhaustion [Unknown]
  - Stress [Unknown]
  - Injury [Unknown]
  - Pain [Unknown]
